FAERS Safety Report 6864328-8 (Version None)
Quarter: 2010Q3

REPORT INFORMATION
  Report Type: 
  Country: None (occurrence: None)
  Receive Date: 20100721
  Receipt Date: 20080324
  Transmission Date: 20110219
  Serious: No
  Sender: FDA-Public Use
  Company Number: US-PFIZER INC-2008026877

PATIENT
  Sex: Female
  Weight: 51.8 kg

DRUGS (2)
  1. CHANTIX [Suspect]
     Indication: SMOKING CESSATION THERAPY
     Dates: start: 20070712, end: 20071022
  2. SPIRIVA [Concomitant]
     Indication: LUNG DISORDER

REACTIONS (2)
  - DEPRESSION [None]
  - INCORRECT DOSE ADMINISTERED [None]
